FAERS Safety Report 10081857 (Version 1)
Quarter: 2014Q2

REPORT INFORMATION
  Report Type: Report from Study
  Country: US (occurrence: US)
  Receive Date: 20140416
  Receipt Date: 20140416
  Transmission Date: 20141212
  Serious: Yes (Hospitalization)
  Sender: FDA-Public Use
  Company Number: US-GLAXOSMITHKLINE-A1069646A

PATIENT
  Age: 76 Year
  Sex: Male
  Weight: 83.7 kg

DRUGS (10)
  1. OFATUMUMAB [Suspect]
     Indication: CHRONIC LYMPHOCYTIC LEUKAEMIA
     Dosage: 2000MG CYCLIC
     Route: 042
     Dates: start: 20130711
  2. LENALIDOMIDE [Suspect]
     Indication: CHRONIC LYMPHOCYTIC LEUKAEMIA
     Dosage: 5MG PER DAY
     Route: 048
     Dates: start: 20131010
  3. VALSARTAN [Concomitant]
     Dosage: 160MG PER DAY
     Route: 048
  4. LEVOTHYROXINE [Concomitant]
     Dosage: .15MG PER DAY
     Route: 048
  5. AMLODIPINE [Concomitant]
     Dosage: 10MG PER DAY
     Route: 048
  6. ATORVASTATIN [Concomitant]
     Dosage: 10MG PER DAY
     Route: 048
  7. CYANOCOBALAMIN [Concomitant]
     Dosage: 1000MCG EVERY 28 DAYS
     Route: 030
  8. PAROXETINE [Concomitant]
     Dosage: 10MG PER DAY
     Route: 048
  9. ACYCLOVIR [Concomitant]
     Dosage: 400MG TWICE PER DAY
     Route: 048
  10. PROCHLORPERAZINE [Concomitant]
     Indication: NAUSEA
     Dosage: 5MG AS REQUIRED
     Route: 048

REACTIONS (1)
  - Renal failure acute [Unknown]
